FAERS Safety Report 8144912-4 (Version None)
Quarter: 2012Q1

REPORT INFORMATION
  Report Type: 
  Country: None (occurrence: None)
  Receive Date: 20120217
  Receipt Date: 20120215
  Transmission Date: 20120608
  Serious: Yes (Hospitalization, Other)
  Sender: FDA-Public Use
  Company Number: US-MERCK-1109USA00852

PATIENT
  Age: 75 Year
  Sex: Female

DRUGS (9)
  1. METOPROLOL [Concomitant]
     Route: 065
     Dates: start: 20030101
  2. POTASSIUM (UNSPECIFIED) [Concomitant]
     Route: 065
     Dates: start: 20030101
  3. TRIAMTERENE [Concomitant]
     Route: 065
     Dates: start: 20030101
  4. FLONASE [Concomitant]
     Route: 065
     Dates: start: 20030101
  5. FOSAMAX [Suspect]
     Route: 048
     Dates: start: 20080211, end: 20090504
  6. CALCIUM (UNSPECIFIED) [Concomitant]
     Route: 065
  7. FOSAMAX PLUS D [Suspect]
     Indication: OSTEOPOROSIS
     Route: 048
     Dates: start: 20080211, end: 20090202
  8. FOSAMAX [Suspect]
     Indication: OSTEOPOROSIS
     Route: 048
     Dates: start: 20050203, end: 20100224
  9. VITAMIN D (UNSPECIFIED) [Concomitant]
     Route: 065

REACTIONS (34)
  - GINGIVAL BLEEDING [None]
  - ILIOTIBIAL BAND SYNDROME [None]
  - MUSCLE STRAIN [None]
  - LUMBAR RADICULOPATHY [None]
  - TOOTH FRACTURE [None]
  - BLOOD PRESSURE INADEQUATELY CONTROLLED [None]
  - HIP FRACTURE [None]
  - PAIN IN JAW [None]
  - SCIATICA [None]
  - GASTROOESOPHAGEAL REFLUX DISEASE [None]
  - DENTAL PLAQUE [None]
  - ATRIAL FIBRILLATION [None]
  - BRADYCARDIA [None]
  - HYPERLIPIDAEMIA [None]
  - TOOTH DISORDER [None]
  - OVERDOSE [None]
  - OSTEONECROSIS OF JAW [None]
  - PAIN IN EXTREMITY [None]
  - TRISMUS [None]
  - INFECTION [None]
  - BLOOD TRIGLYCERIDES INCREASED [None]
  - DIZZINESS [None]
  - BLOOD CHOLESTEROL INCREASED [None]
  - HYPOXIA [None]
  - FEMUR FRACTURE [None]
  - BUNDLE BRANCH BLOCK RIGHT [None]
  - ANAEMIA POSTOPERATIVE [None]
  - ATELECTASIS [None]
  - GLUCOSE TOLERANCE IMPAIRED [None]
  - LOOSE TOOTH [None]
  - CARPAL TUNNEL SYNDROME [None]
  - COUGH [None]
  - IMPAIRED HEALING [None]
  - POSTOPERATIVE FEVER [None]
